FAERS Safety Report 6278342-7 (Version None)
Quarter: 2009Q3

REPORT INFORMATION
  Report Type: 
  Country: None (occurrence: None)
  Receive Date: 20090720
  Receipt Date: 20090720
  Transmission Date: 20100115
  Serious: Yes (Other)
  Sender: FDA-Public Use
  Company Number: None

PATIENT
  Sex: Female
  Weight: 79.3795 kg

DRUGS (1)
  1. LISINOPRIL [Suspect]
     Indication: CARDIAC FAILURE
     Dosage: 40 MGS TWICE A DAY PO
     Route: 048
     Dates: start: 20040509, end: 20070829

REACTIONS (1)
  - PUSTULAR PSORIASIS [None]
